FAERS Safety Report 6250531-7 (Version None)
Quarter: 2009Q2

REPORT INFORMATION
  Report Type: 
  Country: None (occurrence: None)
  Receive Date: 20090630
  Receipt Date: 20090618
  Transmission Date: 20091009
  Serious: No
  Sender: FDA-Public Use
  Company Number: US-BAYER-200924173NA

PATIENT
  Age: 33 Year
  Sex: Female

DRUGS (2)
  1. YAZ [Suspect]
     Indication: CONTRACEPTION
     Dosage: DOSING SCHEDULE AS INDICATED IN PACKAGE INSERT
     Route: 048
     Dates: start: 20071101, end: 20081101
  2. YAZ [Suspect]
     Dosage: ON CONTINUOUS BASIS
     Route: 048
     Dates: start: 20081101

REACTIONS (2)
  - MIGRAINE WITH AURA [None]
  - VAGINAL HAEMORRHAGE [None]
